FAERS Safety Report 14140199 (Version 1)
Quarter: 2017Q4

REPORT INFORMATION
  Report Type: Spontaneous
  Country: GB (occurrence: GB)
  Receive Date: 20171030
  Receipt Date: 20171030
  Transmission Date: 20180321
  Serious: Yes (Hospitalization)
  Sender: FDA-Public Use
  Company Number: GB-UCBSA-2017042730

PATIENT
  Age: 2 Day
  Sex: Male
  Weight: 3 kg

DRUGS (1)
  1. VIMPAT [Suspect]
     Active Substance: LACOSAMIDE
     Indication: EPILEPSY
     Dosage: UNK
     Route: 064

REACTIONS (6)
  - Overfeeding of infant [Not Recovered/Not Resolved]
  - Irritability [Not Recovered/Not Resolved]
  - Crying [Not Recovered/Not Resolved]
  - Sleep disorder [Unknown]
  - Drug withdrawal syndrome neonatal [Unknown]
  - Foetal exposure during pregnancy [Unknown]

NARRATIVE: CASE EVENT DATE: 20171010
